FAERS Safety Report 10609704 (Version 1)
Quarter: 2014Q4

REPORT INFORMATION
  Report Type: Report from Study
  Country: US (occurrence: US)
  Receive Date: 20141126
  Receipt Date: 20141126
  Transmission Date: 20150529
  Serious: Yes (Death)
  Sender: FDA-Public Use
  Company Number: US-ASTRAZENECA-2014SE89851

PATIENT
  Sex: Male

DRUGS (1)
  1. MERREM [Suspect]
     Active Substance: MEROPENEM
     Route: 042
     Dates: start: 201410

REACTIONS (1)
  - Death [Fatal]
